FAERS Safety Report 6156585-0 (Version None)
Quarter: 2009Q2

REPORT INFORMATION
  Report Type: 
  Country: None (occurrence: None)
  Receive Date: 20090413
  Receipt Date: 20090107
  Transmission Date: 20091009
  Serious: Yes (Death)
  Sender: FDA-Public Use
  Company Number: OPER20090006

PATIENT
  Age: 50 Year
  Sex: Male

DRUGS (5)
  1. OPANA ER [Suspect]
     Indication: PAIN
     Dosage: 20 MG, DAILY, PER ORAL
     Route: 048
     Dates: start: 20080101, end: 20081212
  2. XANAX [Suspect]
     Dosage: 1 MG, TID, PER ORAL
     Route: 048
  3. CYMBALTA [Suspect]
     Dosage: 60 MG, DAILY, PER ORAL
     Route: 048
  4. AMBIEN [Suspect]
     Dosage: 10 MG, QHS, PER ORAL
     Route: 048
  5. SOMA [Suspect]
     Dosage: 350 MG, BID, PER ORAL
     Route: 048

REACTIONS (1)
  - DEATH [None]
